FAERS Safety Report 4668696-7 (Version None)
Quarter: 2005Q2

REPORT INFORMATION
  Report Type: 
  Country: None (occurrence: None)
  Receive Date: 20050523
  Receipt Date: 20050118
  Transmission Date: 20051028
  Serious: Yes (Hospitalization)
  Sender: FDA-Public Use
  Company Number: PHRM2005FR00571

PATIENT
  Age: 51 Year
  Sex: Female
  Weight: 80 kg

DRUGS (2)
  1. ZOLEDRONATE [Suspect]
     Indication: METASTASIS
     Dosage: 4 MG, QMO
     Route: 042
     Dates: start: 20021107
  2. FEMARA [Concomitant]
     Indication: METASTASIS
     Dosage: 2.5 MG, QD
     Route: 048
     Dates: start: 20021107

REACTIONS (3)
  - BONE DEBRIDEMENT [None]
  - OSTEONECROSIS [None]
  - TOOTH EXTRACTION [None]
